FAERS Safety Report 11277759 (Version 5)
Quarter: 2018Q2

REPORT INFORMATION
  Report Type: Report from Study
  Country: JP (occurrence: JP)
  Receive Date: 20150716
  Receipt Date: 20180420
  Transmission Date: 20180711
  Serious: Yes (Hospitalization)
  Sender: FDA-Public Use
  Company Number: PHJP2015JP011671

PATIENT
  Age: 55 Year
  Sex: Female
  Weight: 55 kg

DRUGS (9)
  1. VOLTAREN ^CIBA-GEIGY^ [Concomitant]
     Indication: PYREXIA
     Dosage: 1 DF, PRN
     Route: 048
     Dates: start: 20150704
  2. FEMARA [Suspect]
     Active Substance: LETROZOLE
     Indication: BREAST CANCER
     Dosage: 2.5 MG, QD
     Route: 048
     Dates: start: 20150624, end: 20150714
  3. LEE011 [Suspect]
     Active Substance: RIBOCICLIB
     Indication: BREAST CANCER
     Dosage: 400 MG, QD
     Route: 048
     Dates: start: 20150624, end: 20150707
  4. RANMARK [Concomitant]
     Active Substance: DENOSUMAB
     Indication: METASTASES TO BONE
     Dosage: 120 MG, UNK
     Route: 058
     Dates: start: 20150623, end: 20150714
  5. FEMARA [Suspect]
     Active Substance: LETROZOLE
     Dosage: 2.5 MG, QD
     Route: 048
     Dates: start: 20150803
  6. AZUNOL [Concomitant]
     Active Substance: SODIUM GUALENATE
     Indication: BREAST CANCER
     Dosage: BID
     Route: 061
     Dates: start: 20150527, end: 20150714
  7. LOXONIN [Concomitant]
     Active Substance: LOXOPROFEN SODIUM
     Indication: PYREXIA
     Dosage: 1 DF, PRN
     Route: 065
     Dates: start: 20150705
  8. DENOTAS [Concomitant]
     Active Substance: CALCIUM CARBONATE\CHOLECALCIFEROL\MAGNESIUM CARBONATE
     Indication: PROPHYLAXIS
     Dosage: 2 DF, QD
     Route: 048
     Dates: start: 20150623, end: 20150714
  9. BIOFERMIN [Concomitant]
     Active Substance: BACILLUS SUBTILIS\LACTOBACILLUS ACIDOPHILUS\STREPTOCOCCUS FAECAIS
     Indication: DIARRHOEA
     Dosage: 1 DF, TID
     Route: 048
     Dates: start: 20150706, end: 20150709

REACTIONS (2)
  - Blood creatinine increased [Recovering/Resolving]
  - Hepatic function abnormal [Recovered/Resolved]

NARRATIVE: CASE EVENT DATE: 20150706
